APPROVED DRUG PRODUCT: DANTROLENE SODIUM
Active Ingredient: DANTROLENE SODIUM
Strength: 25MG
Dosage Form/Route: CAPSULE;ORAL
Application: A076686 | Product #001 | TE Code: AB
Applicant: ELITE LABORATORIES INC
Approved: Oct 24, 2005 | RLD: No | RS: No | Type: RX